FAERS Safety Report 12574598 (Version 2)
Quarter: 2016Q3

REPORT INFORMATION
  Report Type: Spontaneous
  Country: DE (occurrence: DE)
  Receive Date: 20160720
  Receipt Date: 20160725
  Transmission Date: 20161109
  Serious: Yes (Other)
  Sender: FDA-Public Use
  Company Number: DE-GALDERMA-DE16004822

PATIENT
  Age: 77 Year
  Sex: Male

DRUGS (5)
  1. XELODA [Concomitant]
     Active Substance: CAPECITABINE
     Indication: COLON CANCER
  2. NITROFURANTOIN. [Concomitant]
     Active Substance: NITROFURANTOIN
     Indication: PRODUCT USED FOR UNKNOWN INDICATION
  3. ACETYLSALICALIC ACID [Concomitant]
     Indication: PRODUCT USED FOR UNKNOWN INDICATION
  4. XELODA [Concomitant]
     Active Substance: CAPECITABINE
     Indication: METASTASES TO LUNG
  5. MIRVASO [Suspect]
     Active Substance: BRIMONIDINE TARTRATE
     Indication: ERYTHEMA
     Route: 061
     Dates: start: 20160630

REACTIONS (8)
  - Vertigo [Recovered/Resolved]
  - Dysarthria [Recovered/Resolved]
  - Hypotension [Recovered/Resolved]
  - Off label use [Recovered/Resolved]
  - Transient ischaemic attack [Recovered/Resolved]
  - Bradycardia [Recovered/Resolved]
  - Cardiovascular insufficiency [Recovered/Resolved]
  - Disturbance in attention [Recovered/Resolved]

NARRATIVE: CASE EVENT DATE: 20160630
